FAERS Safety Report 5287208-0 (Version None)
Quarter: 2007Q2

REPORT INFORMATION
  Report Type: 
  Country: None (occurrence: None)
  Receive Date: 20070404
  Receipt Date: 20070326
  Transmission Date: 20071010
  Serious: Yes (Other)
  Sender: FDA-Public Use
  Company Number: JP-PFIZER INC-2007023392

PATIENT
  Sex: Male
  Weight: 57 kg

DRUGS (6)
  1. DETRUSITOL SR [Suspect]
     Indication: POLLAKIURIA
     Route: 048
     Dates: start: 20061225, end: 20070315
  2. DETRUSITOL SR [Suspect]
     Indication: HYPERTONIC BLADDER
  3. NITRENDIPINE [Suspect]
     Indication: HYPERTENSION
     Route: 048
  4. MUCODYNE [Concomitant]
     Route: 048
  5. THEOLONG [Concomitant]
     Route: 048
  6. TAMSULOSIN HCL [Concomitant]
     Route: 048

REACTIONS (1)
  - HYPERTENSION [None]
